FAERS Safety Report 17495821 (Version 4)
Quarter: 2020Q2

REPORT INFORMATION
  Report Type: Spontaneous
  Country: US (occurrence: US)
  Receive Date: 20200303
  Receipt Date: 20200518
  Transmission Date: 20200713
  Serious: Yes (Hospitalization, Other)
  Sender: FDA-Public Use
  Company Number: US-ACTELION-A-US2020-202449

PATIENT
  Age: 68 Year
  Sex: Female

DRUGS (1)
  1. OPSUMIT [Suspect]
     Active Substance: MACITENTAN
     Indication: PULMONARY ARTERIAL HYPERTENSION
     Dosage: 10 MG, QD
     Route: 048
     Dates: start: 20200114

REACTIONS (7)
  - Oxygen saturation decreased [Unknown]
  - Wrong dose [Unknown]
  - Dialysis [Unknown]
  - Dizziness [Unknown]
  - Dyspnoea exertional [Unknown]
  - Hypotension [Unknown]
  - Walking aid user [Unknown]

NARRATIVE: CASE EVENT DATE: 20200219
